FAERS Safety Report 4747771-2 (Version None)
Quarter: 2005Q3

REPORT INFORMATION
  Report Type: 
  Country: None (occurrence: None)
  Receive Date: 20050817
  Receipt Date: 20050817
  Transmission Date: 20060218
  Serious: Yes (Life-Threatening)
  Sender: FDA-Public Use
  Company Number: None

PATIENT
  Age: 60 Year
  Sex: Male
  Weight: 29.0302 kg

DRUGS (2)
  1. WARFARIN 7.5 MG [Suspect]
     Indication: EMBOLISM VENOUS
     Dosage: 7.5 MG DAILY ORAL
     Route: 048
     Dates: start: 20050618, end: 20050623
  2. BACTRIM [Concomitant]

REACTIONS (1)
  - INTERNATIONAL NORMALISED RATIO INCREASED [None]
